FAERS Safety Report 9640593 (Version 1)
Quarter: 2013Q4

REPORT INFORMATION
  Report Type: Report from Study
  Country: US (occurrence: US)
  Receive Date: 20131023
  Receipt Date: 20131023
  Transmission Date: 20140711
  Serious: No
  Sender: FDA-Public Use
  Company Number: US-ABBVIE-13P-163-1059228-00

PATIENT
  Age: 25 Year
  Sex: Female
  Weight: 77.18 kg

DRUGS (2)
  1. LUPRON DEPOT [Suspect]
     Indication: ENDOMETRIOSIS
     Dates: start: 201302
  2. KEPRA [Concomitant]
     Indication: CONVULSION

REACTIONS (2)
  - Thirst [Not Recovered/Not Resolved]
  - Vaginal haemorrhage [Recovered/Resolved]
